FAERS Safety Report 22141395 (Version 8)
Quarter: 2023Q2

REPORT INFORMATION
  Report Type: Report from Study
  Country: ES (occurrence: None)
  Receive Date: 20230327
  Receipt Date: 20230523
  Transmission Date: 20230721
  Serious: Yes (Hospitalization)
  Sender: FDA-Public Use
  Company Number: ES-Eisai Medical Research-EC-2023-136811

PATIENT
  Age: 61 Year
  Sex: Female
  Weight: 38 kg

DRUGS (12)
  1. LENVATINIB [Suspect]
     Active Substance: LENVATINIB
     Indication: Renal cell carcinoma
     Route: 048
     Dates: start: 20210709, end: 20230316
  2. PEMBROLIZUMAB [Suspect]
     Active Substance: PEMBROLIZUMAB
     Indication: Renal cell carcinoma
     Route: 041
     Dates: start: 20210709, end: 20230208
  3. PEMBROLIZUMAB [Suspect]
     Active Substance: PEMBROLIZUMAB
     Route: 041
     Dates: start: 20230413
  4. DIAZEPAM [Concomitant]
     Active Substance: DIAZEPAM
     Dates: start: 202106
  5. LORAZEPAM [Concomitant]
     Active Substance: LORAZEPAM
     Dates: start: 202105
  6. EXFORGE [Concomitant]
     Active Substance: AMLODIPINE BESYLATE\VALSARTAN
     Dates: start: 20210720, end: 20230316
  7. HYDROCHLOROTHIAZIDE [Concomitant]
     Active Substance: HYDROCHLOROTHIAZIDE
     Dates: start: 20210720
  8. ZARATOR [ATORVASTATIN] [Concomitant]
     Dates: start: 20211217
  9. TOBREX [Concomitant]
     Active Substance: TOBRAMYCIN
     Dates: start: 20220328
  10. EUTHYROX [Concomitant]
     Active Substance: LEVOTHYROXINE SODIUM
     Dates: start: 20221207, end: 20230412
  11. PROTEIN [Concomitant]
     Active Substance: PROTEIN
     Dates: start: 20221219
  12. CARBOHYDRATES NOS;FATS NOS;FIBRE, DIETARY;MINERALS NOS;PROTEINS NOS;VI [Concomitant]
     Dates: start: 20221026

REACTIONS (1)
  - Transient ischaemic attack [Recovered/Resolved]

NARRATIVE: CASE EVENT DATE: 20230316
